FAERS Safety Report 23241774 (Version 11)
Quarter: 2024Q2

REPORT INFORMATION
  Report Type: Spontaneous
  Country: AR (occurrence: AR)
  Receive Date: 20231129
  Receipt Date: 20240425
  Transmission Date: 20240716
  Serious: Yes (Other)
  Sender: FDA-Public Use
  Company Number: AR-MYLANLABS-2023M1093318

PATIENT
  Age: 39 Year
  Sex: Male

DRUGS (4)
  1. CLOZAPINE [Suspect]
     Active Substance: CLOZAPINE
     Indication: Product used for unknown indication
     Dosage: 450 MILLIGRAM, QD
     Route: 065
     Dates: start: 201909
  2. CLOZAPINE [Suspect]
     Active Substance: CLOZAPINE
     Dosage: 250 MILLIGRAM, QD
     Route: 065
  3. VALPROATE MAGNESIUM [Concomitant]
     Active Substance: VALPROATE MAGNESIUM
     Dosage: 400 MILLIGRAM, TID
     Route: 065
  4. RISPERIDONE [Concomitant]
     Active Substance: RISPERIDONE
     Dosage: 0.5 DOSAGE FORM, BID (LOW DOSE, 1/2 TABLET IN D AND C)
     Route: 065

REACTIONS (3)
  - Neutropenia [Recovering/Resolving]
  - Contraindicated product administered [Unknown]
  - Therapy cessation [Unknown]

NARRATIVE: CASE EVENT DATE: 20230902
